FAERS Safety Report 4814737-3 (Version None)
Quarter: 2005Q4

REPORT INFORMATION
  Report Type: 
  Country: None (occurrence: None)
  Receive Date: 20051028
  Receipt Date: 20041217
  Transmission Date: 20060501
  Serious: No
  Sender: FDA-Public Use
  Company Number: US-GLAXOSMITHKLINE-A0537790A

PATIENT
  Age: 67 Year
  Sex: Female

DRUGS (3)
  1. ADVAIR DISKUS 100/50 [Suspect]
     Indication: CHRONIC OBSTRUCTIVE PULMONARY DISEASE
     Dosage: 500MCG TWICE PER DAY
     Route: 055
     Dates: start: 20020601
  2. ATROVENT [Concomitant]
  3. PRINIVIL [Concomitant]

REACTIONS (1)
  - GLOSSITIS [None]
